FAERS Safety Report 9217545 (Version 2)
Quarter: 2013Q2

REPORT INFORMATION
  Report Type: Spontaneous
  Country: JO (occurrence: JO)
  Receive Date: 20130408
  Receipt Date: 20130423
  Transmission Date: 20140414
  Serious: Yes (Other)
  Sender: FDA-Public Use
  Company Number: JO-PFIZER INC-2013106031

PATIENT
  Age: 2 Month
  Sex: 0

DRUGS (3)
  1. DIFLUCAN [Suspect]
     Indication: CANDIDA INFECTION
     Dosage: 8 MG/KG/DAY DIVIDED INTO TWO DOSES
     Route: 042
  2. CEPHALOSPORINS AND RELATED SUBSTANCES [Concomitant]
  3. AMINOGLYCOSIDE ANTIBACTERIALS [Concomitant]

REACTIONS (2)
  - Retinopathy of prematurity [Unknown]
  - Blindness [Unknown]
